FAERS Safety Report 7680405-6 (Version None)
Quarter: 2011Q3

REPORT INFORMATION
  Report Type: 
  Country: None (occurrence: None)
  Receive Date: 20110811
  Receipt Date: 20110811
  Transmission Date: 20111222
  Serious: Yes (Hospitalization)
  Sender: FDA-Public Use
  Company Number: None

PATIENT
  Sex: Female

DRUGS (3)
  1. INCIVEK [Concomitant]
  2. PEGASYS [Suspect]
     Indication: HEPATITIS C
     Dosage: 180MCG WEEKLY SUBCUT
     Route: 058
     Dates: start: 20110605, end: 20110807
  3. RIBASPHERE [Suspect]
     Indication: HEPATITIS C
     Dosage: 600MG TWICE DAILY ORAL
     Route: 048
     Dates: start: 20110605, end: 20110807

REACTIONS (5)
  - ILL-DEFINED DISORDER [None]
  - EYE SWELLING [None]
  - CANDIDIASIS [None]
  - HAEMOGLOBIN DECREASED [None]
  - DEPRESSED LEVEL OF CONSCIOUSNESS [None]
